FAERS Safety Report 18608460 (Version 2)
Quarter: 2020Q4

REPORT INFORMATION
  Report Type: Report from Study
  Country: CO (occurrence: CO)
  Receive Date: 20201212
  Receipt Date: 20201222
  Transmission Date: 20210114
  Serious: Yes (Death, Hospitalization)
  Sender: FDA-Public Use
  Company Number: NVSC2020CO331039

PATIENT
  Age: 75 Year
  Sex: Male

DRUGS (12)
  1. REVOLADE [Suspect]
     Active Substance: ELTROMBOPAG
     Dosage: 75 MG, QD (ALSO ON 05 DEC 2020)
     Route: 048
     Dates: start: 20201204, end: 20201206
  2. BISACODYL. [Concomitant]
     Active Substance: BISACODYL
     Indication: PLATELET DISORDER
     Dosage: UNK
     Route: 065
  3. DANAZOL. [Concomitant]
     Active Substance: DANAZOL
     Indication: PLATELET DISORDER
     Dosage: UNK
     Route: 065
  4. LORATADINE. [Concomitant]
     Active Substance: LORATADINE
     Indication: PLATELET DISORDER
     Dosage: UNK
     Route: 065
  5. REVOLADE [Suspect]
     Active Substance: ELTROMBOPAG
     Indication: IMMUNE THROMBOCYTOPENIA
     Dosage: 25 MG, QD
     Route: 048
     Dates: start: 20201129
  6. METFORMIN [Suspect]
     Active Substance: METFORMIN HYDROCHLORIDE
     Indication: DIABETES MELLITUS
     Dosage: 850 MG, QD
     Route: 048
  7. INSULIN [Concomitant]
     Active Substance: INSULIN NOS
     Indication: DIABETES MELLITUS
     Dosage: UNK UNK, QD (DOES NOT REMEMBER)
     Route: 058
  8. HYDROCORTISONE. [Concomitant]
     Active Substance: HYDROCORTISONE
     Indication: PLATELET DISORDER
     Dosage: UNK
     Route: 065
  9. REVOLADE [Suspect]
     Active Substance: ELTROMBOPAG
     Dosage: 50 MG, QD
     Route: 048
  10. PREDNISOLONE. [Concomitant]
     Active Substance: PREDNISOLONE
     Indication: PLATELET DISORDER
     Dosage: UNK
     Route: 065
  11. LOSARTAN. [Suspect]
     Active Substance: LOSARTAN
     Indication: HYPERTENSION
     Dosage: 50 MG, QD
     Route: 048
  12. PREDNISONE. [Concomitant]
     Active Substance: PREDNISONE
     Indication: PLATELET DISORDER
     Dosage: UNK
     Route: 065

REACTIONS (6)
  - Pyrexia [Fatal]
  - Inappropriate schedule of product administration [Unknown]
  - Platelet count increased [Unknown]
  - Platelet count decreased [Unknown]
  - COVID-19 [Fatal]
  - Lung disorder [Fatal]

NARRATIVE: CASE EVENT DATE: 20201205
